FAERS Safety Report 21141252 (Version 1)
Quarter: 2022Q3

REPORT INFORMATION
  Report Type: Spontaneous
  Country: US (occurrence: None)
  Receive Date: 20220727
  Receipt Date: 20220727
  Transmission Date: 20221027
  Serious: No
  Sender: FDA-Public Use
  Company Number: None

PATIENT
  Sex: Female

DRUGS (1)
  1. ICATIBANT ACETATE [Suspect]
     Active Substance: ICATIBANT ACETATE
     Indication: Complement deficiency disease
     Dosage: FREQUENCY : AS NEEDED;?
     Route: 058

REACTIONS (11)
  - Condition aggravated [None]
  - Eye swelling [None]
  - Swelling face [None]
  - Swelling [None]
  - Peripheral swelling [None]
  - Peripheral swelling [None]
  - Lip swelling [None]
  - Swollen tongue [None]
  - Ear swelling [None]
  - Pharyngeal swelling [None]
  - Asthenia [None]

NARRATIVE: CASE EVENT DATE: 20220713
